FAERS Safety Report 16668533 (Version 1)
Quarter: 2019Q3

REPORT INFORMATION
  Report Type: Spontaneous
  Country: US (occurrence: US)
  Receive Date: 20190620
  Receipt Date: 20190620
  Transmission Date: 20191004
  Serious: No
  Sender: FDA-Public Use
  Company Number: None

PATIENT
  Age: 58 Year
  Sex: Male

DRUGS (1)
  1. MYCOPHENOLIC TAB 360MG DR [Suspect]
     Active Substance: MYCOPHENOLIC ACID
     Dates: start: 20190514

REACTIONS (3)
  - Diabetes mellitus inadequate control [None]
  - Renal function test abnormal [None]
  - Transplant [None]

NARRATIVE: CASE EVENT DATE: 20190514
